FAERS Safety Report 4457571-9 (Version None)
Quarter: 2004Q3

REPORT INFORMATION
  Report Type: 
  Country: None (occurrence: None)
  Receive Date: 20040922
  Receipt Date: 20040908
  Transmission Date: 20050211
  Serious: Yes (Hospitalization)
  Sender: FDA-Public Use
  Company Number: 2004-BP-07870NB

PATIENT
  Age: 72 Year
  Sex: Male

DRUGS (1)
  1. MOBIC [Suspect]
     Indication: BACK PAIN
     Dosage: PO
     Route: 048
     Dates: start: 20010401, end: 20030801

REACTIONS (4)
  - GASTROINTESTINAL HAEMORRHAGE [None]
  - ILEUS [None]
  - SMALL INTESTINAL STENOSIS [None]
  - SMALL INTESTINE ULCER [None]
